FAERS Safety Report 5628765-1 (Version None)
Quarter: 2008Q1

REPORT INFORMATION
  Report Type: 
  Country: None (occurrence: None)
  Receive Date: 20080215
  Receipt Date: 20080215
  Transmission Date: 20080703
  Serious: Yes (Life-Threatening, Hospitalization)
  Sender: FDA-Public Use
  Company Number: None

PATIENT
  Age: 48 Year
  Sex: Female
  Weight: 68.4932 kg

DRUGS (1)
  1. TAMIFLU [Suspect]
     Indication: INFLUENZA
     Dosage: 75MG BID PO
     Route: 048
     Dates: start: 20080213, end: 20080215

REACTIONS (11)
  - DIARRHOEA [None]
  - DYSPEPSIA [None]
  - ERUCTATION [None]
  - FAECES PALE [None]
  - GASTROOESOPHAGEAL REFLUX DISEASE [None]
  - HEPATITIS [None]
  - INSOMNIA [None]
  - MUSCLE SPASMS [None]
  - PRURITUS [None]
  - RASH MACULO-PAPULAR [None]
  - REFUSAL OF TREATMENT BY PATIENT [None]
